FAERS Safety Report 16673067 (Version 1)
Quarter: 2019Q3

REPORT INFORMATION
  Report Type: Spontaneous
  Country: US (occurrence: US)
  Receive Date: 20190805
  Receipt Date: 20190805
  Transmission Date: 20191004
  Serious: No
  Sender: FDA-Public Use
  Company Number: None

PATIENT
  Age: 26 Year
  Sex: Male
  Weight: 92.25 kg

DRUGS (2)
  1. BUPROPION XL [Suspect]
     Active Substance: BUPROPION HYDROCHLORIDE
     Indication: DEPRESSION
     Dosage: ?          QUANTITY:1 TABLET(S);?
     Route: 048
     Dates: start: 20190616, end: 20190801
  2. BUPROPION XL [Suspect]
     Active Substance: BUPROPION HYDROCHLORIDE
     Indication: ANXIETY
     Dosage: ?          QUANTITY:1 TABLET(S);?
     Route: 048
     Dates: start: 20190616, end: 20190801

REACTIONS (7)
  - Panic attack [None]
  - Fear of death [None]
  - Product substitution issue [None]
  - Feeling abnormal [None]
  - Treatment failure [None]
  - Heart rate increased [None]
  - Anxiety [None]

NARRATIVE: CASE EVENT DATE: 20190805
